FAERS Safety Report 14599382 (Version 1)
Quarter: 2018Q1

REPORT INFORMATION
  Report Type: Spontaneous
  Country: IQ (occurrence: IQ)
  Receive Date: 20180302
  Receipt Date: 20180302
  Transmission Date: 20180509
  Serious: Yes (Hospitalization)
  Sender: FDA-Public Use
  Company Number: None

PATIENT
  Age: 36 Year
  Sex: Female
  Weight: 65 kg

DRUGS (4)
  1. BIOTIN [Concomitant]
     Active Substance: BIOTIN
  2. SELENIUM [Concomitant]
     Active Substance: SELENIUM
  3. GLUTATHIONE [Concomitant]
     Active Substance: GLUTATHIONE
  4. TOPICAL STEROIDS [Suspect]
     Active Substance: UNSPECIFIED INGREDIENT
     Indication: ECZEMA
     Dosage: QUANTITY:1 TUBES;?
     Route: 061
     Dates: start: 20120815

REACTIONS (1)
  - Eczema [None]

NARRATIVE: CASE EVENT DATE: 20140905
